FAERS Safety Report 7608281-8 (Version None)
Quarter: 2011Q3

REPORT INFORMATION
  Report Type: 
  Country: None (occurrence: None)
  Receive Date: 20110714
  Receipt Date: 20110708
  Transmission Date: 20111222
  Serious: Yes (Other)
  Sender: FDA-Public Use
  Company Number: CA-PFIZER INC-2011127409

PATIENT
  Age: 89 Year
  Sex: Female

DRUGS (3)
  1. VITALUX [Concomitant]
     Indication: MACULAR DEGENERATION
     Dosage: 1 CAP AM AND PM
  2. XALATAN [Suspect]
     Indication: GLAUCOMA
     Dosage: 1 GTT, 1X/DAY AT NIGHT
     Route: 047
     Dates: start: 20100204
  3. TYLENOL-500 [Concomitant]
     Indication: ARTHRITIS
     Dosage: UNK-UP TO 6 CAPS PER DAY

REACTIONS (5)
  - SENSORY LOSS [None]
  - EYE IRRITATION [None]
  - THIRST [None]
  - CEREBROVASCULAR ACCIDENT [None]
  - DRY EYE [None]
